FAERS Safety Report 9665240 (Version 1)
Quarter: 2013Q4

REPORT INFORMATION
  Report Type: Spontaneous
  Country: IT (occurrence: IT)
  Receive Date: 20131101
  Receipt Date: 20131101
  Transmission Date: 20140711
  Serious: Yes (Other)
  Sender: FDA-Public Use
  Company Number: PHHY2013IT121203

PATIENT
  Age: 88 Year
  Sex: Female

DRUGS (5)
  1. AMOXICILLIN+CLAVULANATE [Suspect]
     Indication: PROPHYLAXIS
     Dosage: 2 U, ONCE/SINGLE
     Route: 048
     Dates: start: 20131006, end: 20131006
  2. LEVOPRAID [Concomitant]
     Dosage: 25 MG, UNK
  3. LEXOTAN [Concomitant]
     Dosage: 2.5 MG/ML, UNK
  4. OMEPRAZOLE [Concomitant]
  5. CITALOPRAM [Concomitant]

REACTIONS (2)
  - Circulatory collapse [Recovering/Resolving]
  - Erythema [Recovering/Resolving]
